FAERS Safety Report 6716074-9 (Version None)
Quarter: 2010Q2

REPORT INFORMATION
  Report Type: 
  Country: None (occurrence: None)
  Receive Date: 20100507
  Receipt Date: 20100430
  Transmission Date: 20101027
  Serious: Yes (Death)
  Sender: FDA-Public Use
  Company Number: A0857812A

PATIENT
  Age: 60 Year
  Sex: Male
  Weight: 101.8 kg

DRUGS (2)
  1. AVANDIA [Suspect]
     Indication: TYPE 2 DIABETES MELLITUS
     Route: 048
  2. AVANDAMET [Suspect]
     Indication: TYPE 2 DIABETES MELLITUS
     Route: 048
     Dates: end: 20070930

REACTIONS (6)
  - ARTERIOSCLEROSIS CORONARY ARTERY [None]
  - DIABETES MELLITUS [None]
  - DISEASE COMPLICATION [None]
  - HYPERTENSION [None]
  - MYOCARDIAL INFARCTION [None]
  - PERIPHERAL VASCULAR DISORDER [None]
